FAERS Safety Report 13426582 (Version 1)
Quarter: 2017Q2

REPORT INFORMATION
  Report Type: Spontaneous
  Country: GB (occurrence: GB)
  Receive Date: 20170411
  Receipt Date: 20170411
  Transmission Date: 20170830
  Serious: Yes (Life-Threatening, Hospitalization)
  Sender: FDA-Public Use
  Company Number: GB-CONCORDIA PHARMACEUTICALS INC.-GSH201704-002235

PATIENT
  Age: 66 Year
  Sex: Male

DRUGS (22)
  1. NAPROXEN. [Suspect]
     Active Substance: NAPROXEN
  2. RAMIPRIL. [Concomitant]
     Active Substance: RAMIPRIL
  3. SILDENAFIL. [Concomitant]
     Active Substance: SILDENAFIL
  4. TIOTROPIUM [Concomitant]
     Active Substance: TIOTROPIUM
  5. CO-AMOXICLAV [Concomitant]
     Active Substance: AMOXICILLIN\CLAVULANIC ACID
  6. AMLODIPINE [Concomitant]
     Active Substance: AMLODIPINE BESYLATE
  7. ATORVASTATIN [Concomitant]
     Active Substance: ATORVASTATIN
  8. DICLOFENAC [Concomitant]
     Active Substance: DICLOFENAC
  9. LORATADINE. [Concomitant]
     Active Substance: LORATADINE
  10. TEMAZEPAM. [Concomitant]
     Active Substance: TEMAZEPAM
  11. GABAPENTIN. [Concomitant]
     Active Substance: GABAPENTIN
  12. ORAMORPH [Concomitant]
     Active Substance: MORPHINE SULFATE
     Dosage: 10MG/5ML
     Route: 048
  13. SALBUTAMOL [Concomitant]
     Active Substance: ALBUTEROL
  14. ZOMORPH [Concomitant]
     Active Substance: MORPHINE SULFATE
  15. PREDNISOLONE. [Suspect]
     Active Substance: PREDNISOLONE
  16. CLOPIDOGREL [Suspect]
     Active Substance: CLOPIDOGREL BISULFATE
  17. AMITRIPTYLINE [Concomitant]
     Active Substance: AMITRIPTYLINE
  18. LANSOPRAZOLE. [Concomitant]
     Active Substance: LANSOPRAZOLE
  19. BACLOFEN. [Concomitant]
     Active Substance: BACLOFEN
  20. MIRTAZAPINE. [Concomitant]
     Active Substance: MIRTAZAPINE
  21. SYMBICORT [Concomitant]
     Active Substance: BUDESONIDE\FORMOTEROL FUMARATE DIHYDRATE
     Dosage: 400/12
  22. TAMSULOSIN [Concomitant]
     Active Substance: TAMSULOSIN

REACTIONS (1)
  - Lower gastrointestinal haemorrhage [Recovering/Resolving]
